FAERS Safety Report 5565910-0 (Version None)
Quarter: 2007Q4

REPORT INFORMATION
  Report Type: 
  Country: None (occurrence: None)
  Receive Date: 20071213
  Receipt Date: 20071128
  Transmission Date: 20080405
  Serious: Yes (Death, Hospitalization)
  Sender: FDA-Public Use
  Company Number: 164698ISR

PATIENT
  Age: 5 Year
  Sex: Male

DRUGS (4)
  1. VINCRISTINE [Suspect]
  2. PREDNISONE [Suspect]
  3. DAUNORUBICIN HCL [Suspect]
  4. ASPARAGINE [Suspect]

REACTIONS (6)
  - FUNGAL SEPSIS [None]
  - HAEMODYNAMIC INSTABILITY [None]
  - LACTIC ACIDOSIS [None]
  - PANCYTOPENIA [None]
  - RESPIRATORY FAILURE [None]
  - SYSTEMIC MYCOSIS [None]
